FAERS Safety Report 4759585-8 (Version None)
Quarter: 2005Q3

REPORT INFORMATION
  Report Type: 
  Country: None (occurrence: None)
  Receive Date: 20050901
  Receipt Date: 20050310
  Transmission Date: 20060218
  Serious: Yes (Hospitalization, Other)
  Sender: FDA-Public Use
  Company Number: US-MERCK-0503USA01932

PATIENT
  Age: 58 Year
  Sex: Female
  Weight: 124 kg

DRUGS (15)
  1. CELEXA [Concomitant]
     Indication: DEPRESSION
     Route: 065
  2. ZETIA [Concomitant]
     Route: 048
  3. DIAZEPAM [Concomitant]
     Route: 065
  4. LONOX [Concomitant]
     Route: 065
  5. METFORMIN [Concomitant]
     Route: 065
  6. VIOXX [Suspect]
     Indication: OSTEOARTHRITIS
     Route: 048
     Dates: start: 20030101, end: 20040901
  7. DIOVAN [Concomitant]
     Indication: DIABETES MELLITUS
     Route: 065
     Dates: start: 20010829, end: 20040101
  8. SYNTHROID [Concomitant]
     Route: 065
  9. AMITRIPTYLINE HYDROCHLORIDE [Concomitant]
     Route: 065
  10. GLUCOPHAGE [Concomitant]
     Route: 065
  11. NIFEDIPINE [Concomitant]
     Route: 065
  12. MENEST [Concomitant]
     Indication: HORMONE REPLACEMENT THERAPY
     Route: 065
  13. AMARYL [Concomitant]
     Route: 065
  14. ACTOS [Concomitant]
     Route: 065
  15. PRAVACHOL [Concomitant]
     Route: 065

REACTIONS (16)
  - ANXIETY [None]
  - BLOOD CHOLESTEROL INCREASED [None]
  - CEREBRAL ATHEROSCLEROSIS [None]
  - CEREBROVASCULAR ACCIDENT [None]
  - DIABETES MELLITUS INADEQUATE CONTROL [None]
  - DISEASE RECURRENCE [None]
  - EMOTIONAL DISTRESS [None]
  - GASTROENTERITIS [None]
  - GASTROOESOPHAGEAL REFLUX DISEASE [None]
  - HYPERTENSION [None]
  - INCREASED TENDENCY TO BRUISE [None]
  - NEUROPATHY PERIPHERAL [None]
  - PARAESTHESIA [None]
  - PHARYNGOLARYNGEAL PAIN [None]
  - THYROID DISORDER [None]
  - TRANSIENT ISCHAEMIC ATTACK [None]
